FAERS Safety Report 16785908 (Version 1)
Quarter: 2019Q3

REPORT INFORMATION
  Report Type: Spontaneous
  Country: GB (occurrence: GB)
  Receive Date: 20190909
  Receipt Date: 20190909
  Transmission Date: 20191005
  Serious: Yes (Other)
  Sender: FDA-Public Use
  Company Number: GB-MYLANLABS-2019M1083891

PATIENT
  Age: 22 Year
  Sex: Male

DRUGS (1)
  1. CLOZAPINE. [Suspect]
     Active Substance: CLOZAPINE
     Dosage: UNK
     Route: 048
     Dates: start: 20160926

REACTIONS (4)
  - Thrombocytopenia [Unknown]
  - Neutrophilia [Unknown]
  - Differential white blood cell count abnormal [Unknown]
  - Leukocytosis [Unknown]

NARRATIVE: CASE EVENT DATE: 20161025
